FAERS Safety Report 7921579-9 (Version None)
Quarter: 2011Q4

REPORT INFORMATION
  Report Type: 
  Country: None (occurrence: None)
  Receive Date: 20111117
  Receipt Date: 20111110
  Transmission Date: 20120403
  Serious: Yes (Death, Other)
  Sender: FDA-Public Use
  Company Number: PHEH2010US03504

PATIENT
  Sex: Female

DRUGS (28)
  1. LOVENOX [Concomitant]
  2. VICODIN [Concomitant]
  3. HERCEPTIN [Concomitant]
  4. LETROZOLE [Concomitant]
  5. FLAGYL [Concomitant]
     Dosage: 500 MG, TID
  6. METOCLOPRAMIDE [Concomitant]
  7. CEFAZOLIN [Concomitant]
  8. AMOXICILLIN [Concomitant]
  9. COUMADIN [Concomitant]
  10. ESTRADIOL [Concomitant]
  11. TAMOXIFEN CITRATE [Concomitant]
  12. PAXIL [Concomitant]
  13. ACETAMINOPHEN [Concomitant]
  14. FEMARA [Concomitant]
  15. DROPERIDOL [Concomitant]
  16. SENOKOT [Concomitant]
  17. ZOMETA [Suspect]
     Indication: BREAST CANCER METASTATIC
     Dates: start: 20070101
  18. WARFARIN SODIUM [Concomitant]
  19. PEN-VEE K [Concomitant]
     Dosage: 500 MG, QID
  20. PSYLLIUM [Concomitant]
     Dosage: 1 DF, BID
  21. NALOXONE [Concomitant]
  22. PERIDEX [Concomitant]
  23. PROMETHAZINE [Concomitant]
  24. CLINDAMYCIN [Concomitant]
     Dosage: 300 MG, TID
     Route: 048
  25. DIPHENHYDRAMINE HCL [Concomitant]
  26. OMEPRAZOLE [Concomitant]
  27. CELEXA [Concomitant]
     Dosage: 10 MG, QHS
     Route: 048
  28. DOCUSATE [Concomitant]
     Dosage: 200 MG, BID

REACTIONS (39)
  - INJURY [None]
  - FACIAL PAIN [None]
  - ARTHRITIS [None]
  - RIB FRACTURE [None]
  - METASTASES TO SPLEEN [None]
  - ANXIETY [None]
  - ERYTHEMA [None]
  - DEPRESSION [None]
  - JAW FRACTURE [None]
  - PNEUMONIA [None]
  - DEATH [None]
  - PAIN [None]
  - PRIMARY SEQUESTRUM [None]
  - ABSCESS [None]
  - METASTASES TO LIVER [None]
  - HAEMOPTYSIS [None]
  - OSTEONECROSIS OF JAW [None]
  - MUSCLE SPASMS [None]
  - CHEST PAIN [None]
  - PATHOLOGICAL FRACTURE [None]
  - PAIN IN JAW [None]
  - NASAL CONGESTION [None]
  - TOOTH LOSS [None]
  - OSTEOSCLEROSIS [None]
  - METASTASES TO BONE [None]
  - OSTEOMYELITIS [None]
  - HYPERLIPIDAEMIA [None]
  - IMPETIGO [None]
  - EMOTIONAL DISTRESS [None]
  - EXPOSED BONE IN JAW [None]
  - SWELLING FACE [None]
  - PARAESTHESIA ORAL [None]
  - BACTERIAL DISEASE CARRIER [None]
  - OPEN WOUND [None]
  - METASTASES TO PLEURA [None]
  - FACIAL NERVE DISORDER [None]
  - DEFORMITY [None]
  - DYSPNOEA EXERTIONAL [None]
  - THYROID DISORDER [None]
